FAERS Safety Report 6674408-8 (Version None)
Quarter: 2010Q2

REPORT INFORMATION
  Report Type: 
  Country: None (occurrence: None)
  Receive Date: 20100409
  Receipt Date: 20100326
  Transmission Date: 20101027
  Serious: Yes (Hospitalization)
  Sender: FDA-Public Use
  Company Number: NL-MEDIMMUNE-MEDI-0010950

PATIENT
  Sex: Female
  Weight: 3.9 kg

DRUGS (4)
  1. SYNAGIS [Suspect]
     Route: 030
     Dates: start: 20100225, end: 20100225
  2. SYNAGIS [Suspect]
     Route: 030
     Dates: start: 20100326, end: 20100326
  3. FOLIC ACID [Concomitant]
  4. FERRO [Concomitant]

REACTIONS (3)
  - COUGH [None]
  - INFLUENZA [None]
  - TACHYPNOEA [None]
